FAERS Safety Report 5311851-3 (Version None)
Quarter: 2007Q2

REPORT INFORMATION
  Report Type: 
  Country: None (occurrence: None)
  Receive Date: 20070427
  Receipt Date: 20070427
  Transmission Date: 20071010
  Serious: Yes (Other)
  Sender: FDA-Public Use
  Company Number: None

PATIENT
  Age: 59 Year
  Sex: Male
  Weight: 172.8205 kg

DRUGS (1)
  1. COZAAR [Suspect]
     Dosage: 100MG  QD  BUCCAL
     Route: 002

REACTIONS (1)
  - THERAPY REGIMEN CHANGED [None]
